FAERS Safety Report 9123413 (Version 2)
Quarter: 2013Q3

REPORT INFORMATION
  Report Type: Spontaneous
  Country: ZA (occurrence: ZA)
  Receive Date: 20130227
  Receipt Date: 20130711
  Transmission Date: 20140515
  Serious: Yes (Hospitalization)
  Sender: FDA-Public Use
  Company Number: ZA-ABBOTT-13P-143-1053827-00

PATIENT
  Age: 47 Year
  Sex: Female
  Weight: 120 kg

DRUGS (5)
  1. HUMIRA [Suspect]
     Indication: RHEUMATOID ARTHRITIS
     Route: 058
     Dates: start: 20120810, end: 201301
  2. HUMIRA [Suspect]
     Dates: end: 20130611
  3. LYRICA [Concomitant]
     Indication: FIBROMYALGIA
  4. GLUCOPHAGE [Concomitant]
     Indication: DIABETES MELLITUS
  5. METHOTREXATE [Concomitant]
     Indication: RHEUMATOID ARTHRITIS
     Dosage: 15MG WEEKLY
     Route: 048

REACTIONS (5)
  - Pain [Not Recovered/Not Resolved]
  - Drug ineffective [Not Recovered/Not Resolved]
  - Lower respiratory tract infection [Recovering/Resolving]
  - Gastrointestinal bacterial infection [Recovered/Resolved]
  - Influenza [Recovering/Resolving]
